FAERS Safety Report 14354755 (Version 1)
Quarter: 2018Q1

REPORT INFORMATION
  Report Type: Report from Study
  Country: US (occurrence: US)
  Receive Date: 20180105
  Receipt Date: 20180105
  Transmission Date: 20180509
  Serious: No
  Sender: FDA-Public Use
  Company Number: PHEH2017US042535

PATIENT
  Age: 1 Year
  Sex: Female
  Weight: 9.3 kg

DRUGS (1)
  1. ILARIS [Suspect]
     Active Substance: CANAKINUMAB
     Indication: TUMOUR NECROSIS FACTOR RECEPTOR-ASSOCIATED PERIODIC SYNDROME
     Dosage: 20 MG, EVERY 8 WEEKS
     Route: 058
     Dates: start: 20171220

REACTIONS (5)
  - Pyrexia [Unknown]
  - Rhinorrhoea [Unknown]
  - Drug administered to patient of inappropriate age [Unknown]
  - Cough [Unknown]
  - Headache [Unknown]

NARRATIVE: CASE EVENT DATE: 20171228
